FAERS Safety Report 6998484-8 (Version None)
Quarter: 2010Q3

REPORT INFORMATION
  Report Type: 
  Country: None (occurrence: None)
  Receive Date: 20100920
  Receipt Date: 20100510
  Transmission Date: 20110219
  Serious: Yes (Hospitalization)
  Sender: FDA-Public Use
  Company Number: US-ASTRAZENECA-2006UW09006

PATIENT
  Sex: Female
  Weight: 68 kg

DRUGS (22)
  1. SEROQUEL [Suspect]
     Indication: BIPOLAR DISORDER
     Dosage: 25 MG TO 200 MG
     Route: 048
     Dates: start: 20020501, end: 20050101
  2. SEROQUEL [Suspect]
     Indication: INSOMNIA
     Dosage: 25 MG TO 200 MG
     Route: 048
     Dates: start: 20020501, end: 20050101
  3. SEROQUEL [Suspect]
     Dosage: 50-400 MG
     Route: 048
     Dates: start: 20020516
  4. SEROQUEL [Suspect]
     Dosage: 50-400 MG
     Route: 048
     Dates: start: 20020516
  5. RISPERDAL [Suspect]
     Indication: BIPOLAR DISORDER
     Route: 065
     Dates: start: 19960101, end: 20030101
  6. RISPERDAL [Suspect]
     Dosage: 3-6 MG
     Dates: start: 19981026
  7. ZYPREXA [Suspect]
     Indication: BIPOLAR DISORDER
     Route: 065
     Dates: start: 20050101
  8. ZYPREXA [Suspect]
     Dosage: 5-10 MG
     Dates: start: 19980204
  9. GEODON [Concomitant]
     Dosage: 40-80 MG
     Dates: start: 20020516
  10. CELEXA [Concomitant]
     Dates: start: 20020516
  11. PREMARIN [Concomitant]
     Dates: start: 19980826
  12. EFFEXOR XR [Concomitant]
     Dates: start: 20020904
  13. WELLBUTRIN SR [Concomitant]
     Dates: start: 20030410
  14. DEPAKOTE [Concomitant]
     Dates: start: 19970611
  15. CLONIDINE [Concomitant]
     Dates: start: 20020531
  16. SINGULAIR [Concomitant]
     Dates: start: 20020523
  17. CARISOPRODOL [Concomitant]
     Indication: MUSCLE SPASMS
     Dosage: 700-1050 MG
     Dates: start: 20020507
  18. ALBUTEROL [Concomitant]
     Dates: start: 19991019
  19. ADVAIR DISKUS 100/50 [Concomitant]
     Dates: start: 20020601
  20. XANAX [Concomitant]
     Dosage: 1-2 MG
     Dates: start: 20010629
  21. ABILIFY [Concomitant]
     Dates: start: 20070101, end: 20080101
  22. HALDOL [Concomitant]
     Dates: start: 19990101

REACTIONS (1)
  - PANCREATITIS [None]
